FAERS Safety Report 6747909-1 (Version None)
Quarter: 2010Q2

REPORT INFORMATION
  Report Type: 
  Country: None (occurrence: None)
  Receive Date: 20100528
  Receipt Date: 20100518
  Transmission Date: 20101027
  Serious: Yes (Hospitalization)
  Sender: FDA-Public Use
  Company Number: JP-ABBOTT-10P-087-0643373-00

PATIENT
  Sex: Male

DRUGS (12)
  1. SEVOFRANE [Suspect]
     Indication: INDUCTION AND MAINTENANCE OF ANAESTHESIA
     Route: 055
     Dates: start: 20090317, end: 20090317
  2. SEVOFRANE [Suspect]
     Route: 055
     Dates: start: 20090317, end: 20090318
  3. ROCURONIUM BROMIDE [Suspect]
     Indication: INDUCTION AND MAINTENANCE OF ANAESTHESIA
     Dates: start: 20090317, end: 20090318
  4. DIPRIVAN [Concomitant]
     Indication: ANAESTHESIA
     Route: 042
  5. FENTANYL [Concomitant]
     Indication: MAINTENANCE OF ANAESTHESIA
     Dates: start: 20090317, end: 20090318
  6. NITROUS OXIDE [Concomitant]
     Indication: MAINTENANCE OF ANAESTHESIA
     Dates: start: 20090317, end: 20090317
  7. KETALAR [Concomitant]
     Indication: ANAESTHESIA
     Dates: start: 20090317, end: 20090318
  8. TRICLORYL [Concomitant]
     Indication: ANAESTHETIC PREMEDICATION
     Dates: start: 20090317, end: 20090317
  9. ATARAX [Concomitant]
     Indication: ANAESTHETIC PREMEDICATION
     Dates: start: 20090317, end: 20090317
  10. MANNITOL ADENINE PHOSPHATE ADDED RED CELL CONCENTRATE [Concomitant]
     Indication: HAEMORRHAGE
     Dates: start: 20090317, end: 20090318
  11. FRESH FROZEN PLASMA [Concomitant]
     Indication: HAEMORRHAGE
     Dates: start: 20090317, end: 20090318
  12. PLATELETS, CONCENTRATED [Concomitant]
     Indication: HAEMORRHAGE
     Dates: start: 20090317, end: 20090318

REACTIONS (1)
  - RHABDOMYOLYSIS [None]
